FAERS Safety Report 5367688-2 (Version None)
Quarter: 2007Q2

REPORT INFORMATION
  Report Type: 
  Country: None (occurrence: None)
  Receive Date: 20070622
  Receipt Date: 20070126
  Transmission Date: 20071010
  Serious: No
  Sender: FDA-Public Use
  Company Number: US-ASTRAZENECA-2007UW01795

PATIENT
  Age: 56 Year
  Sex: Male
  Weight: 168 kg

DRUGS (7)
  1. PULMICORT [Suspect]
     Indication: ASTHMA
     Route: 055
  2. PROVENTIL-HFA [Concomitant]
  3. BECONASE [Concomitant]
  4. LIPITOR [Concomitant]
  5. CALCIUM CHLORIDE [Concomitant]
  6. XALATAN [Concomitant]
  7. DILANTIN [Concomitant]

REACTIONS (3)
  - COUGH [None]
  - DRUG ADMINISTRATION ERROR [None]
  - DYSPNOEA [None]
